FAERS Safety Report 10227464 (Version 1)
Quarter: 2014Q2

REPORT INFORMATION
  Report Type: Report from Study
  Country: BR (occurrence: BR)
  Receive Date: 20140610
  Receipt Date: 20140610
  Transmission Date: 20141212
  Serious: Yes (Other)
  Sender: FDA-Public Use
  Company Number: PHHY2014BR067906

PATIENT
  Sex: Male
  Weight: 44 kg

DRUGS (3)
  1. RITALINA [Suspect]
     Dosage: UNK UKN, UNK
     Dates: start: 201206
  2. RITALIN LA [Suspect]
     Indication: ATTENTION DEFICIT/HYPERACTIVITY DISORDER
     Dosage: 1 DF, QD (CONCENTRATION 20 MG)
     Dates: start: 201404
  3. RITALIN LA [Suspect]
     Dosage: DOSE REDUCED (CONCENTRATION 10 MG)

REACTIONS (4)
  - Paralysis [Recovering/Resolving]
  - Eating disorder [Recovering/Resolving]
  - Mood altered [Recovering/Resolving]
  - Sedation [Recovering/Resolving]
